FAERS Safety Report 23738237 (Version 1)
Quarter: 2024Q2

REPORT INFORMATION
  Report Type: Spontaneous
  Country: CN (occurrence: CN)
  Receive Date: 20240412
  Receipt Date: 20240412
  Transmission Date: 20240715
  Serious: Yes (Other)
  Sender: FDA-Public Use
  Company Number: CN-PFIZER INC-PV202400046475

PATIENT
  Age: 77 Year
  Sex: Female

DRUGS (9)
  1. SOLU-MEDROL [Suspect]
     Active Substance: METHYLPREDNISOLONE SODIUM SUCCINATE
     Indication: Thyroiditis subacute
     Dosage: 40 MG
     Route: 042
     Dates: start: 2024, end: 2024
  2. SOLU-MEDROL [Suspect]
     Active Substance: METHYLPREDNISOLONE SODIUM SUCCINATE
     Dosage: 20 MG
     Route: 042
     Dates: start: 2024, end: 2024
  3. LENALIDOMIDE [Concomitant]
     Active Substance: LENALIDOMIDE
     Indication: Immunomodulatory therapy
     Dosage: 10 MG, DAILY
     Route: 048
     Dates: start: 20240314
  4. ISOSORBIDE MONONITRATE [Concomitant]
     Active Substance: ISOSORBIDE MONONITRATE
     Indication: Cardiac disorder
  5. ROSUVASTATIN CALCIUM [Concomitant]
     Active Substance: ROSUVASTATIN CALCIUM
     Indication: Cardiac disorder
  6. AMLODIPINE\VALSARTAN [Concomitant]
     Active Substance: AMLODIPINE\VALSARTAN
     Indication: Hypertension
  7. MIYA [Concomitant]
     Indication: Gastrointestinal motility disorder
  8. MOSAPRIDE [Concomitant]
     Active Substance: MOSAPRIDE
     Indication: Gastrointestinal motility disorder
  9. MEGESTROL [Concomitant]
     Active Substance: MEGESTROL
     Indication: Decreased appetite
     Dosage: 0.5 DF, DAILY

REACTIONS (5)
  - Adrenal insufficiency [Unknown]
  - Insomnia [Unknown]
  - Asthenia [Recovering/Resolving]
  - Restlessness [Unknown]
  - Suffocation feeling [Unknown]
